FAERS Safety Report 10523923 (Version 2)
Quarter: 2014Q4

REPORT INFORMATION
  Report Type: Spontaneous
  Country: SE (occurrence: SE)
  Receive Date: 20141017
  Receipt Date: 20141121
  Transmission Date: 20150528
  Serious: Yes (Hospitalization)
  Sender: FDA-Public Use
  Company Number: SE-ROCHE-1476384

PATIENT
  Age: 84 Year
  Sex: Male

DRUGS (15)
  1. LUCENTIS [Suspect]
     Active Substance: RANIBIZUMAB
     Route: 050
  2. LUCENTIS [Suspect]
     Active Substance: RANIBIZUMAB
     Route: 050
     Dates: start: 20140825
  3. BEHEPAN [Concomitant]
     Active Substance: HYDROXOCOBALAMIN
  4. MALVITONA [Concomitant]
  5. LUCENTIS [Suspect]
     Active Substance: RANIBIZUMAB
     Indication: PRODUCT USED FOR UNKNOWN INDICATION
     Route: 050
     Dates: start: 20131223
  6. BISOPROLOL [Concomitant]
     Active Substance: BISOPROLOL
  7. VALSARTAN. [Concomitant]
     Active Substance: VALSARTAN
  8. LUCENTIS [Suspect]
     Active Substance: RANIBIZUMAB
     Route: 050
  9. LUCENTIS [Suspect]
     Active Substance: RANIBIZUMAB
     Route: 050
  10. LUCENTIS [Suspect]
     Active Substance: RANIBIZUMAB
     Route: 050
  11. PARACETAMOL [Concomitant]
     Active Substance: ACETAMINOPHEN
  12. LUCENTIS [Suspect]
     Active Substance: RANIBIZUMAB
     Route: 050
  13. ANDAPSIN [Concomitant]
  14. WARAN [Concomitant]
     Active Substance: WARFARIN SODIUM
  15. STILNOCT [Concomitant]
     Active Substance: ZOLPIDEM TARTRATE

REACTIONS (1)
  - Cerebrovascular accident [Recovered/Resolved with Sequelae]

NARRATIVE: CASE EVENT DATE: 20140913
